FAERS Safety Report 11116052 (Version 3)
Quarter: 2015Q2

REPORT INFORMATION
  Report Type: Spontaneous
  Country: FR (occurrence: FR)
  Receive Date: 20150515
  Receipt Date: 20150604
  Transmission Date: 20150821
  Serious: Yes (Death, Hospitalization)
  Sender: FDA-Public Use
  Company Number: FR-PFIZER INC-2015162783

PATIENT
  Age: 86 Year
  Sex: Female

DRUGS (11)
  1. LASILIX FAIBLE [Concomitant]
     Active Substance: FUROSEMIDE
     Dosage: 20 MG, 1X/DAY
     Route: 048
  2. ZELITREX [Concomitant]
     Active Substance: VALACYCLOVIR HYDROCHLORIDE
     Dosage: 500 MG, 2X/DAY
     Route: 048
  3. LAMALINE [Concomitant]
     Active Substance: ACETAMINOPHEN\CAFFEINE\OPIUM
     Dosage: 1 DF, 3X/DAY
     Route: 048
  4. FRAGMINE [Suspect]
     Active Substance: DALTEPARIN SODIUM
     Dosage: 1 DF, 1X/DAY
     Route: 058
  5. INEXIUM /01479302/ [Concomitant]
     Active Substance: ESOMEPRAZOLE MAGNESIUM
     Dosage: 20 MG, 1X/DAY
     Route: 048
  6. BACTRIM [Concomitant]
     Active Substance: SULFAMETHOXAZOLE\TRIMETHOPRIM
     Dosage: 1 DF, 1X/DAY
     Route: 048
  7. ZAMUDOL [Concomitant]
     Active Substance: TRAMADOL HYDROCHLORIDE
     Dosage: 50 MG, 2X/DAY
     Route: 048
  8. IBRUTINIB [Suspect]
     Active Substance: IBRUTINIB
     Indication: MANTLE CELL LYMPHOMA RECURRENT
     Dosage: 4 DF, 1X/DAY
     Route: 048
     Dates: start: 20140919, end: 20141003
  9. LASILIX /00032601/ [Concomitant]
     Active Substance: FUROSEMIDE
     Dosage: 40 MG, 1X/DAY
     Route: 048
  10. SECTRAL [Concomitant]
     Active Substance: ACEBUTOLOL HYDROCHLORIDE
     Dosage: 1000 MG, 1X/DAY
     Route: 048
  11. PREVISCAN /00789001/ [Concomitant]
     Active Substance: FLUINDIONE

REACTIONS (2)
  - Septic shock [Fatal]
  - Agranulocytosis [Fatal]

NARRATIVE: CASE EVENT DATE: 20141003
